FAERS Safety Report 16838136 (Version 2)
Quarter: 2020Q1

REPORT INFORMATION
  Report Type: Spontaneous
  Country: GB (occurrence: GB)
  Receive Date: 20190923
  Receipt Date: 20200109
  Transmission Date: 20200409
  Serious: Yes (Death)
  Sender: FDA-Public Use
  Company Number: GB-TEVA-2019-GB-1109854

PATIENT
  Age: 62 Year
  Sex: Female
  Weight: 67.4 kg

DRUGS (9)
  1. CYCLOPHOSPHAMIDE. [Concomitant]
     Active Substance: CYCLOPHOSPHAMIDE
     Indication: CHEMOTHERAPY
     Dosage: 2 CYCLES
     Dates: start: 20190710
  2. EPIRUBICIN [Concomitant]
     Active Substance: EPIRUBICIN
     Indication: CHEMOTHERAPY
     Dosage: 2 CYCLES
     Dates: start: 20190710
  3. ONDANSETRON [Concomitant]
     Active Substance: ONDANSETRON
  4. FLUOROURACIL. [Concomitant]
     Active Substance: FLUOROURACIL
     Indication: CHEMOTHERAPY
     Dosage: 2 CYCLES
     Dates: start: 20190710
  5. METOCLOPRAMIDE. [Concomitant]
     Active Substance: METOCLOPRAMIDE
  6. LIPEGFILGRASTIM [Suspect]
     Active Substance: LIPEGFILGRASTIM
     Dosage: USED IN CYCLE ONE OF FEC100-T CHEMOTHERAPY
  7. MST CONTINUS [Concomitant]
     Active Substance: MORPHINE SULFATE
  8. ORAMORPH [Concomitant]
     Active Substance: MORPHINE SULFATE
  9. DEXAMETHASONE. [Concomitant]
     Active Substance: DEXAMETHASONE
     Indication: CHEMOTHERAPY
     Dosage: 2 CYCLES
     Dates: start: 20190710

REACTIONS (4)
  - Loss of consciousness [Fatal]
  - Dizziness [Fatal]
  - Embolic stroke [Fatal]
  - Pain [Fatal]

NARRATIVE: CASE EVENT DATE: 20190803
